FAERS Safety Report 24060499 (Version 1)
Quarter: 2024Q3

REPORT INFORMATION
  Report Type: Spontaneous
  Country: VN (occurrence: VN)
  Receive Date: 20240708
  Receipt Date: 20240708
  Transmission Date: 20241017
  Serious: Yes (Hospitalization, Other)
  Sender: BAYER
  Company Number: VN-BAYER-2024A096710

PATIENT
  Age: 53 Year
  Sex: Male
  Weight: 70 kg

DRUGS (1)
  1. ULTRAVIST [Suspect]
     Active Substance: IOPROMIDE
     Indication: Computerised tomogram
     Dosage: 100 ML, ONCE; 623.40 MG/ML, 100 ML
     Route: 042
     Dates: start: 20240527, end: 20240527

REACTIONS (6)
  - Dyspnoea [Recovering/Resolving]
  - Use of accessory respiratory muscles [Recovering/Resolving]
  - Eyelid oedema [Recovering/Resolving]
  - Stridor [Recovering/Resolving]
  - Anaphylactic reaction [Recovering/Resolving]
  - Oxygen saturation decreased [Recovering/Resolving]

NARRATIVE: CASE EVENT DATE: 20240527
